FAERS Safety Report 21082316 (Version 1)
Quarter: 2022Q3

REPORT INFORMATION
  Report Type: Spontaneous
  Country: FR (occurrence: FR)
  Receive Date: 20220714
  Receipt Date: 20220714
  Transmission Date: 20221026
  Serious: Yes (Hospitalization)
  Sender: FDA-Public Use
  Company Number: None

PATIENT
  Age: 56 Year
  Sex: Male
  Weight: 75.6 kg

DRUGS (17)
  1. URSODIOL [Suspect]
     Active Substance: URSODIOL
     Indication: Product used for unknown indication
     Dates: start: 20211220
  2. ACETAMINOPHEN [Suspect]
     Active Substance: ACETAMINOPHEN
     Indication: Product used for unknown indication
     Dosage: IF NECESSARY
     Route: 065
     Dates: start: 2021
  3. FUROSEMIDE [Suspect]
     Active Substance: FUROSEMIDE
     Indication: Product used for unknown indication
     Dosage: UNIT DOSE: 40 MG, FREQUENCY TIME: 1 DAY
     Dates: start: 20211220
  4. PREDNISONE [Suspect]
     Active Substance: PREDNISONE
     Indication: Prophylaxis against transplant rejection
     Dosage: UNIT DOSE: 30 MG, FREQUENCY TIME: 1DAY
     Dates: start: 20211229
  5. CELLCEPT [Suspect]
     Active Substance: MYCOPHENOLATE MOFETIL
     Indication: Prophylaxis against transplant rejection
     Dosage: UNIT DOSE: 500 MG, FREQUENCY TIME : 12 HRS
     Dates: start: 20220125, end: 20220503
  6. ESOMEPRAZOLE [Suspect]
     Active Substance: ESOMEPRAZOLE
     Indication: Prophylaxis against gastrointestinal ulcer
     Dosage: UNIT DOSE: 40 MG, STRENGTH: 40 MG, FREQUENCY TIME : 1 DAY
     Dates: start: 20220125
  7. FILGRASTIM [Suspect]
     Active Substance: FILGRASTIM
     Indication: Neutropenia
     Dosage: 30 MIU 5 TIMES A WEEK, 30 MU/0.5 ML, SOLUTION FOR INJECTION OR INFUSION IN PRE-FILLED SYRINGE
     Dates: start: 20211220
  8. BACTRIM [Suspect]
     Active Substance: SULFAMETHOXAZOLE\TRIMETHOPRIM
     Indication: Opportunistic infection prophylaxis
     Dosage: 400/80MG TWICE A WEEK
     Dates: start: 20211221
  9. ARANESP [Suspect]
     Active Substance: DARBEPOETIN ALFA
     Indication: Anaemia
     Dosage: ARANESP 300 MICROGRAMS, UNIT DOSE: 300 MCG, FREQUENCY TIME : 1 WEEK
     Dates: start: 20220125
  10. CALCIUM CARBONATE\CHOLECALCIFEROL [Suspect]
     Active Substance: CALCIUM CARBONATE\CHOLECALCIFEROL
     Indication: Vitamin supplementation
     Dosage: UNIT DOSE: 2 DF, FREQUENCY TIME : 1 DAY
     Dates: start: 20220125
  11. PREVYMIS [Suspect]
     Active Substance: LETERMOVIR
     Indication: Antiviral prophylaxis
     Dosage: UNIT DOSE: 480 MG , STRENGTH: 480 MG, FREQUENCY TIME : 1 DAY
     Dates: start: 20211220
  12. VALACYCLOVIR HYDROCHLORIDE [Suspect]
     Active Substance: VALACYCLOVIR HYDROCHLORIDE
     Indication: Antiviral prophylaxis
     Dosage: UNIT DOSE: 500 MG, FREQUENCY TIME : 12 HRS
     Dates: start: 2021
  13. NOXAFIL [Suspect]
     Active Substance: POSACONAZOLE
     Indication: Antifungal prophylaxis
     Dosage: UNIT DOSE: 300 MG, FREQUENCY: 1 DAY
     Dates: start: 2021
  14. ELTROMBOPAG OLAMINE [Suspect]
     Active Substance: ELTROMBOPAG OLAMINE
     Indication: Thrombocytopenia
     Dosage: 150 MG PER DAY ON 01/25/2022 INCREASED TO 225 MG/D ON 05/10/2022
     Dates: start: 20220125
  15. LEUCOVORIN CALCIUM [Suspect]
     Active Substance: LEUCOVORIN CALCIUM
     Indication: Haematotoxicity
     Dosage: STRENGTH: 25 MG, UNIT DOSE: 525 MG, FREQUENCY TIME : 1 DAY
     Dates: start: 20220125
  16. AMLODIPINE BESYLATE [Suspect]
     Active Substance: AMLODIPINE BESYLATE
     Indication: Hypertension
     Dosage: STRENGTH: 5 MG, UNIT DOSE: 5 MG, FREQUENCY TIME : 1 DAY, DURATION : 4 MONTHS
     Dates: start: 20220125, end: 202205
  17. FUNGIZONE [Suspect]
     Active Substance: AMPHOTERICIN B
     Indication: Product used for unknown indication
     Dosage: 3 MOUTHWASHES PER DAY
     Dates: start: 20211220

REACTIONS (2)
  - Renal failure [Not Recovered/Not Resolved]
  - Condition aggravated [Not Recovered/Not Resolved]

NARRATIVE: CASE EVENT DATE: 20210101
